FAERS Safety Report 17714554 (Version 6)
Quarter: 2020Q4

REPORT INFORMATION
  Report Type: Report from Study
  Country: CA (occurrence: CA)
  Receive Date: 20200427
  Receipt Date: 20201222
  Transmission Date: 20210113
  Serious: Yes (Hospitalization, Other)
  Sender: FDA-Public Use
  Company Number: CA-GLAXOSMITHKLINE-CA2020AMR068496

PATIENT
  Sex: Female

DRUGS (11)
  1. VENTOLIN HFA [Suspect]
     Active Substance: ALBUTEROL SULFATE
     Indication: ASTHMA
     Dosage: UNK
     Dates: start: 2019
  2. TYLENOL [Suspect]
     Active Substance: ACETAMINOPHEN
     Indication: PRODUCT USED FOR UNKNOWN INDICATION
     Dosage: UNK
  3. ASCORBIC ACID. [Suspect]
     Active Substance: ASCORBIC ACID
     Indication: PRODUCT USED FOR UNKNOWN INDICATION
     Dosage: UNK
  4. NASONEX [Suspect]
     Active Substance: MOMETASONE FUROATE
     Indication: PRODUCT USED FOR UNKNOWN INDICATION
     Dosage: UNK
  5. SYMBICORT [Suspect]
     Active Substance: BUDESONIDE\FORMOTEROL FUMARATE DIHYDRATE
     Indication: ASTHMA
     Dosage: 2 PUFF(S), QID, 200/6MCG
     Route: 055
     Dates: start: 2019
  6. SALBUTAMOL SULPHATE [Suspect]
     Active Substance: ALBUTEROL SULFATE
     Indication: ASTHMA
     Dosage: 4 PUFF(S), AS NEEDED, 100MCG
     Route: 055
     Dates: start: 2019
  7. PREDNISONE. [Suspect]
     Active Substance: PREDNISONE
     Indication: ASTHMA
     Dosage: 50 MG, QD
     Route: 048
     Dates: start: 2019
  8. ATROVENT [Suspect]
     Active Substance: IPRATROPIUM BROMIDE
     Indication: ASTHMA
     Dosage: 2 PUFF(S), Q4H
     Route: 055
     Dates: start: 202010
  9. SYMBICORT [Suspect]
     Active Substance: BUDESONIDE\FORMOTEROL FUMARATE DIHYDRATE
     Indication: PRODUCT USED FOR UNKNOWN INDICATION
     Dosage: UNK
  10. MOMETASONE NASAL SPRAY [Suspect]
     Active Substance: MOMETASONE
     Indication: PRODUCT USED FOR UNKNOWN INDICATION
     Dosage: UNK
  11. ZINC GLUCONATE [Suspect]
     Active Substance: ZINC GLUCONATE
     Indication: PRODUCT USED FOR UNKNOWN INDICATION
     Dosage: UNK

REACTIONS (38)
  - Asthma [Not Recovered/Not Resolved]
  - Pyrexia [Unknown]
  - Night sweats [Unknown]
  - Nasal polyps [Unknown]
  - Productive cough [Unknown]
  - Uterine leiomyoma [Unknown]
  - Viral hepatitis carrier [Unknown]
  - Urinary tract infection [Unknown]
  - Confusional state [Unknown]
  - Aspirin-exacerbated respiratory disease [Unknown]
  - Diarrhoea [Unknown]
  - Hypoaesthesia [Unknown]
  - Illness [Unknown]
  - Sputum discoloured [Unknown]
  - Hypotension [Unknown]
  - Cough [Unknown]
  - Condition aggravated [Unknown]
  - Cerebrovascular accident [Unknown]
  - Loss of personal independence in daily activities [Not Recovered/Not Resolved]
  - Pericardial effusion [Unknown]
  - Blood count abnormal [Unknown]
  - Dyspnoea [Recovering/Resolving]
  - Dyspnoea exertional [Unknown]
  - Chest pain [Unknown]
  - Wheezing [Recovering/Resolving]
  - Weight decreased [Unknown]
  - Sleep disorder due to a general medical condition [Unknown]
  - Therapeutic product effect incomplete [Unknown]
  - Intracardiac thrombus [Unknown]
  - Eosinophilic myocarditis [Unknown]
  - Myelosuppression [Unknown]
  - Pleural effusion [Unknown]
  - Hypereosinophilic syndrome [Unknown]
  - Chills [Unknown]
  - Myocarditis [Unknown]
  - Bone marrow eosinophilic leukocyte count increased [Unknown]
  - Chest discomfort [Unknown]
  - Helicobacter infection [Unknown]
